FAERS Safety Report 9759141 (Version 3)
Quarter: 2014Q1

REPORT INFORMATION
  Report Type: Not Available
  Country: FR (occurrence: FR)
  Receive Date: 20131216
  Receipt Date: 20140313
  Transmission Date: 20141002
  Serious: Yes (Hospitalization, Other)
  Sender: FDA-Public Use
  Company Number: FR-ASTELLAS-2013EU010984

PATIENT
  Age: 82 Year
  Sex: Male

DRUGS (5)
  1. XTANDI [Suspect]
     Indication: PROSTATE CANCER
     Dosage: 160 MG, UID/QD
     Route: 048
     Dates: start: 20131022, end: 20131128
  2. DICODIN [Suspect]
     Indication: PROSTATE CANCER
     Dosage: 2 DF, UID/QD
     Route: 048
     Dates: start: 20131010, end: 20131128
  3. LANSOPRAZOLE [Concomitant]
     Dosage: UNK
     Route: 048
  4. SYMBICORT [Concomitant]
     Dosage: UNK
     Route: 050
  5. TEMESTA                            /00273201/ [Concomitant]
     Dosage: UNK
     Route: 048

REACTIONS (4)
  - Cholestasis [Recovered/Resolved]
  - Hepatocellular injury [Recovered/Resolved]
  - Ocular icterus [Unknown]
  - Transaminases increased [Recovered/Resolved]
